FAERS Safety Report 5779648-8 (Version None)
Quarter: 2008Q2

REPORT INFORMATION
  Report Type: 
  Country: None (occurrence: None)
  Receive Date: 20080617
  Receipt Date: 20080602
  Transmission Date: 20081010
  Serious: Yes (Other)
  Sender: FDA-Public Use
  Company Number: 2008S1009604

PATIENT
  Sex: Male

DRUGS (1)
  1. QUINAPRIL HYDROCHLORIDE (QUINAPRIL HYDROCHLORIDE) [Suspect]
     Indication: DRUG USE FOR UNKNOWN INDICATION
     Dosage: ORAL
     Route: 048

REACTIONS (1)
  - GASTROSTOMY TUBE INSERTION [None]
